FAERS Safety Report 7717697-0 (Version None)
Quarter: 2011Q3

REPORT INFORMATION
  Report Type: 
  Country: None (occurrence: None)
  Receive Date: 20110824
  Receipt Date: 20110815
  Transmission Date: 20111222
  Serious: Yes (Hospitalization)
  Sender: FDA-Public Use
  Company Number: TPA2011A04907

PATIENT
  Age: 69 Year
  Sex: Female
  Weight: 95.2554 kg

DRUGS (9)
  1. FUROSEMIDE [Concomitant]
  2. AMLODIPINE [Concomitant]
  3. FLOVENT [Concomitant]
  4. CITALOPRAM HYDROBROMIDE [Concomitant]
  5. LEVOTHROID (LEVOTHYROXINE SODIUM) [Concomitant]
  6. ASPIRIN [Concomitant]
  7. LOVASTATIN [Concomitant]
  8. ACTOS [Suspect]
     Indication: DIABETES MELLITUS
     Dosage: 30 MG, 1 IN 1 D, PER ORAL
     Route: 048
     Dates: start: 20060101
  9. LISINOPRIL [Concomitant]

REACTIONS (1)
  - HAEMORRHAGE [None]
